FAERS Safety Report 10420206 (Version 1)
Quarter: 2014Q3

REPORT INFORMATION
  Report Type: Report from Study
  Country: US (occurrence: None)
  Receive Date: 20140804
  Receipt Date: 20140804
  Transmission Date: 20150326
  Serious: Yes (Hospitalization)
  Sender: FDA-Public Use
  Company Number: 2013US008756

PATIENT
  Age: 77 Year
  Sex: Male
  Weight: 84.8 kg

DRUGS (8)
  1. GLASSIA [Suspect]
     Active Substance: .ALPHA.1-PROTEINASE INHIBITOR HUMAN
     Indication: ALPHA-1 ANTI-TRYPSIN DEFICIENCY
     Dosage: 4750+/-10% WEEKLY IV, INTRAVENOUS
     Route: 042
     Dates: start: 2010
  2. UNSPECIFIED STATIN (UNSPECIFIED STATIN) [Concomitant]
  3. ASPIRIN (ACETYLSALICYLIC ACID) [Concomitant]
     Active Substance: ASPIRIN
  4. OXYGEN (OXYGEN) [Concomitant]
     Active Substance: OXYGEN
  5. LISINOPRIL (LISINOPRIL) [Concomitant]
     Active Substance: LISINOPRIL
  6. LIPITOR [Concomitant]
     Active Substance: ATORVASTATIN CALCIUM
  7. PREDNISONE (PREDNISONE) [Concomitant]
     Active Substance: PREDNISONE
  8. UNSPECIFIED BRONCHLDILATORS (UNSPECIFIED BRONCHODIALATORS) [Concomitant]

REACTIONS (4)
  - Constipation [None]
  - Chronic obstructive pulmonary disease [None]
  - Treatment noncompliance [None]
  - Hypersomnia [None]

NARRATIVE: CASE EVENT DATE: 20131119
